FAERS Safety Report 18848458 (Version 1)
Quarter: 2021Q1

REPORT INFORMATION
  Report Type: Spontaneous
  Country: CN (occurrence: CN)
  Receive Date: 20210204
  Receipt Date: 20210204
  Transmission Date: 20210419
  Serious: Yes (Other)
  Sender: FDA-Public Use
  Company Number: CN-BAUSCH-BL-2021-003130

PATIENT
  Age: 70 Year
  Sex: Male

DRUGS (3)
  1. PREDNISOLONE ACETATE OPHTHALMIC SOLUTION [Concomitant]
     Indication: GLAUCOMA
  2. TIMOLOL MALEATE EYE DROPS [Suspect]
     Active Substance: TIMOLOL MALEATE
     Indication: GLAUCOMA
     Route: 047
     Dates: start: 20210106, end: 20210109
  3. PREDNISOLONE ACETATE OPHTHALMIC SOLUTION [Concomitant]
     Indication: FASCIITIS
     Route: 047
     Dates: start: 20210106

REACTIONS (1)
  - Angina pectoris [Recovered/Resolved]

NARRATIVE: CASE EVENT DATE: 20210108
